FAERS Safety Report 24211774 (Version 1)
Quarter: 2024Q3

REPORT INFORMATION
  Report Type: Spontaneous
  Country: GB (occurrence: GB)
  Receive Date: 20240814
  Receipt Date: 20240814
  Transmission Date: 20241016
  Serious: Yes (Other)
  Sender: SANOFI AVENTIS
  Company Number: None

PATIENT
  Age: 68 Year

DRUGS (6)
  1. ASPIRIN [Suspect]
     Active Substance: ASPIRIN
     Dosage: 75 MG, QD (75MG ONCE DAILY)
     Route: 048
     Dates: start: 20240611
  2. CLOPIDOGREL BISULFATE [Suspect]
     Active Substance: CLOPIDOGREL BISULFATE
     Dosage: 75 MG, QD (75MG ONCE DAILY)
     Route: 048
     Dates: start: 20240617
  3. RAMIPRIL [Suspect]
     Active Substance: RAMIPRIL
     Dosage: 1.25 MG, QD (1.25MG ONCE DAILY)
     Dates: start: 20240611
  4. ISOSORBIDE MONONITRATE [Suspect]
     Active Substance: ISOSORBIDE MONONITRATE
     Dosage: 30 MG, QD (30MG ONCE DAILY)
     Route: 048
     Dates: start: 20240611
  5. BISOPROLOL FUMARATE [Suspect]
     Active Substance: BISOPROLOL FUMARATE
     Dosage: 2.5 MG, QD (2.5MG ONCE DAILY)
     Route: 048
     Dates: start: 20240611
  6. TICAGRELOR [Suspect]
     Active Substance: TICAGRELOR
     Dosage: 90 MG, BID (90MG TABLETS, TWICE A DAY
     Route: 048
     Dates: start: 20240611, end: 20240616

REACTIONS (5)
  - Drug hypersensitivity [Unknown]
  - Lymphorrhoea [Unknown]
  - Skin weeping [Unknown]
  - Urticaria [Not Recovered/Not Resolved]
  - Rash [Unknown]

NARRATIVE: CASE EVENT DATE: 20240710
